FAERS Safety Report 4422514-0 (Version None)
Quarter: 2004Q3

REPORT INFORMATION
  Report Type: 
  Country: None (occurrence: None)
  Receive Date: 20040806
  Receipt Date: 20040728
  Transmission Date: 20050211
  Serious: Yes (Death)
  Sender: FDA-Public Use
  Company Number: 2004-07-0718

PATIENT
  Sex: Male

DRUGS (2)
  1. PROVENTIL [Suspect]
     Indication: ASTHMA
     Dosage: ORAL AER INH
     Route: 055
  2. PROVENTIL-HFA [Suspect]
     Dosage: ORAL
     Route: 048
     Dates: start: 19980101, end: 20000101

REACTIONS (2)
  - ASTHMA [None]
  - DRUG INEFFECTIVE [None]
